FAERS Safety Report 6349621-X (Version None)
Quarter: 2009Q3

REPORT INFORMATION
  Report Type: 
  Country: None (occurrence: None)
  Receive Date: 20090911
  Receipt Date: 20090904
  Transmission Date: 20100115
  Serious: Yes (Hospitalization)
  Sender: FDA-Public Use
  Company Number: FR-PFIZER INC-2009264337

PATIENT

DRUGS (4)
  1. IRINOTECAN HCL [Suspect]
     Indication: NEOPLASM MALIGNANT
     Dosage: 486
     Route: 042
     Dates: start: 20081015, end: 20090318
  2. FLUOROURACIL [Suspect]
     Indication: NEOPLASM MALIGNANT
     Dosage: 750
     Route: 040
     Dates: start: 20081015, end: 20090318
  3. FLUOROURACIL [Suspect]
     Dosage: 4500
     Route: 041
     Dates: start: 20081015, end: 20090318
  4. AVASTIN [Suspect]
     Indication: NEOPLASM MALIGNANT
     Dosage: 385
     Route: 042
     Dates: start: 20081015, end: 20090318

REACTIONS (1)
  - ATRIAL FIBRILLATION [None]
